FAERS Safety Report 24844981 (Version 1)
Quarter: 2025Q1

REPORT INFORMATION
  Report Type: Spontaneous
  Country: US (occurrence: None)
  Receive Date: 20250115
  Receipt Date: 20250115
  Transmission Date: 20250409
  Serious: No
  Sender: FDA-CTU
  Company Number: None

PATIENT
  Sex: Female

DRUGS (3)
  1. TADALAFIL [Suspect]
     Active Substance: TADALAFIL
     Indication: Pulmonary arterial hypertension
     Dosage: FREQUENCY : DAILY;?
     Route: 048
     Dates: start: 202501
  2. TREPROSTINIL [Suspect]
     Active Substance: TREPROSTINIL
  3. BOSENTAN [Concomitant]
     Active Substance: BOSENTAN

REACTIONS (5)
  - Dyspnoea [None]
  - Diarrhoea [None]
  - Muscular weakness [None]
  - Vascular access site rupture [None]
  - Therapy interrupted [None]
